FAERS Safety Report 21964343 (Version 3)
Quarter: 2023Q2

REPORT INFORMATION
  Report Type: Spontaneous
  Country: JP (occurrence: JP)
  Receive Date: 20230207
  Receipt Date: 20230404
  Transmission Date: 20230722
  Serious: Yes (Hospitalization, Other)
  Sender: FDA-Public Use
  Company Number: JP-ONO-2023JP002613

PATIENT
  Age: 66 Year
  Sex: Male

DRUGS (1)
  1. OPDIVO [Suspect]
     Active Substance: NIVOLUMAB
     Indication: Metastatic renal cell carcinoma
     Route: 041

REACTIONS (5)
  - Pemphigoid [Unknown]
  - Immune-mediated hypothyroidism [Unknown]
  - Immune-mediated adrenal insufficiency [Unknown]
  - Immune-mediated uveitis [Unknown]
  - Immune-mediated lung disease [Recovering/Resolving]
